APPROVED DRUG PRODUCT: ETOMIDATE
Active Ingredient: ETOMIDATE
Strength: 2MG/ML
Dosage Form/Route: INJECTABLE;INJECTION
Application: A078289 | Product #001
Applicant: RISING PHARMA HOLDING INC
Approved: Jan 2, 2009 | RLD: No | RS: No | Type: DISCN